FAERS Safety Report 22182490 (Version 1)
Quarter: 2023Q2

REPORT INFORMATION
  Report Type: Spontaneous
  Country: PL (occurrence: PL)
  Receive Date: 20230406
  Receipt Date: 20230406
  Transmission Date: 20230722
  Serious: Yes (Other)
  Sender: FDA-Public Use
  Company Number: PL-GILEAD-2023-0621010

PATIENT
  Age: 47 Year
  Sex: Male
  Weight: 143 kg

DRUGS (3)
  1. TRUVADA [Suspect]
     Active Substance: EMTRICITABINE\TENOFOVIR DISOPROXIL FUMARATE
     Indication: Prophylaxis against HIV infection
     Route: 065
  2. INVIRASE [Concomitant]
     Active Substance: SAQUINAVIR MESYLATE
  3. NORVIR [Concomitant]
     Active Substance: RITONAVIR
     Dosage: UNK

REACTIONS (6)
  - Eye injury [Unknown]
  - Blindness traumatic [Unknown]
  - Sleep apnoea syndrome [Unknown]
  - Insulin resistance [Unknown]
  - Hyperinsulinism [Unknown]
  - Glucose tolerance impaired [Unknown]

NARRATIVE: CASE EVENT DATE: 20190101
